FAERS Safety Report 5190717-6 (Version None)
Quarter: 2006Q4

REPORT INFORMATION
  Report Type: 
  Country: None (occurrence: None)
  Receive Date: 20061222
  Receipt Date: 20061116
  Transmission Date: 20070319
  Serious: Yes (Other)
  Sender: FDA-Public Use
  Company Number: DE-ROCHE-471404

PATIENT
  Age: 50 Year
  Sex: Female
  Weight: 66 kg

DRUGS (2)
  1. PEGASYS [Suspect]
     Dosage: FORM:SYRINGE.
     Route: 058
     Dates: start: 20040115
  2. INFERAX [Suspect]
     Dosage: DRUG NAME: INFERAX.
     Route: 058
     Dates: start: 20020315, end: 20040115

REACTIONS (1)
  - ANAEMIA MACROCYTIC [None]
